FAERS Safety Report 13870367 (Version 2)
Quarter: 2017Q4

REPORT INFORMATION
  Report Type: Spontaneous
  Country: DE (occurrence: DE)
  Receive Date: 20170815
  Receipt Date: 20171018
  Transmission Date: 20180320
  Serious: Yes (Disabling, Other)
  Sender: FDA-Public Use
  Company Number: GXKR2017DE004041

PATIENT
  Sex: Male
  Weight: 90 kg

DRUGS (9)
  1. LEVOFLOXACIN - 1 A PHARMA [Suspect]
     Active Substance: LEVOFLOXACIN
     Indication: BRONCHITIS
     Dosage: 500 MG, QD
     Route: 048
     Dates: start: 20170707, end: 20170714
  2. TELMISARTAN ABZ [Concomitant]
     Indication: HYPERTENSION
     Dosage: 80 MG, QD
     Route: 048
  3. L-THYROXIN BETA [Concomitant]
     Indication: THYROID FUNCTION TEST ABNORMAL
     Dosage: 175 UG, QD
     Route: 048
  4. SOLU DECORTIN H [Concomitant]
     Active Substance: PREDNISOLONE SODIUM SUCCINATE
     Indication: DYSPNOEA
     Dosage: UNK UKN, UNK
     Route: 042
     Dates: start: 20170711
  5. SALBUTAMOL-RATIOPHARM N [Concomitant]
     Indication: CHRONIC OBSTRUCTIVE PULMONARY DISEASE
     Dosage: UNK UKN, PRN
     Route: 055
  6. PANTOPRAZOLE SODIUM. [Concomitant]
     Active Substance: PANTOPRAZOLE SODIUM
     Indication: GASTROOESOPHAGEAL REFLUX DISEASE
     Dosage: 40 MG, QD
     Route: 048
  7. BRONCHIPRET LIQUID [Concomitant]
     Indication: BRONCHITIS
     Dosage: 5.4 ML, TID
     Route: 048
     Dates: start: 20170703, end: 20170729
  8. SPIOLTO RESPIMAT [Concomitant]
     Active Substance: OLODATEROL HYDROCHLORIDE\TIOTROPIUM BROMIDE MONOHYDRATE
     Indication: CHRONIC OBSTRUCTIVE PULMONARY DISEASE
     Dosage: 1 DF, QD
     Route: 055
  9. EUPHYLONG [Concomitant]
     Active Substance: THEOPHYLLINE ANHYDROUS
     Indication: DYSPNOEA
     Dosage: UNK UKN, UNK
     Route: 042
     Dates: start: 20170711

REACTIONS (5)
  - Skin discolouration [Recovered/Resolved]
  - Hypersensitivity vasculitis [Unknown]
  - Peripheral swelling [Not Recovered/Not Resolved]
  - Haematoma [Not Recovered/Not Resolved]
  - Pain in extremity [Not Recovered/Not Resolved]

NARRATIVE: CASE EVENT DATE: 20170714
